FAERS Safety Report 5288838-2 (Version None)
Quarter: 2007Q2

REPORT INFORMATION
  Report Type: 
  Country: None (occurrence: None)
  Receive Date: 20070405
  Receipt Date: 20070327
  Transmission Date: 20071010
  Serious: Yes (Other)
  Sender: FDA-Public Use
  Company Number: NL-MERCK-0703NLD00027

PATIENT
  Age: 55 Year
  Sex: Female

DRUGS (20)
  1. ZOCOR [Suspect]
     Indication: HYPERCHOLESTEROLAEMIA
     Route: 048
     Dates: start: 19950101, end: 20060101
  2. DILTIAZEM HYDROCHLORIDE [Suspect]
     Indication: HYPERTENSION
     Route: 048
     Dates: start: 20041201, end: 20050801
  3. HYDROCHLOROTHIAZIDE [Concomitant]
     Route: 048
  4. ACETAMINOPHEN [Concomitant]
     Route: 065
  5. ROSUVASTATIN CALCIUM [Concomitant]
     Route: 048
     Dates: start: 20060801
  6. METOPROLOL TARTRATE [Suspect]
     Indication: HYPERTENSION
     Route: 048
     Dates: start: 20041201, end: 20051201
  7. HYDROXOCOBALAMIN [Concomitant]
     Route: 065
  8. CLOPIDOGREL BISULFATE [Concomitant]
     Route: 048
  9. DIAZEPAM [Concomitant]
     Route: 065
  10. BUDESONIDE [Concomitant]
     Route: 065
  11. [THERAPY UNSPECIFIED] [Concomitant]
     Route: 065
  12. DEXCHLORPHENIRAMINE MALEATE [Concomitant]
     Route: 065
  13. NITROGLYCERIN [Concomitant]
     Route: 065
  14. TIZANIDINE HYDROCHLORIDE [Concomitant]
     Route: 065
  15. BECLOMETHASONE DIPROPIONATE [Concomitant]
     Route: 065
  16. FENOTEROL HYDROBROMIDE [Concomitant]
     Route: 065
  17. IPRATROPIUM BROMIDE [Concomitant]
     Route: 065
  18. PYRIDOXINE HYDROCHLORIDE [Concomitant]
     Route: 051
  19. CROMOLYN SODIUM [Concomitant]
     Route: 065
  20. ESOMEPRAZOLE MAGNESIUM [Concomitant]
     Route: 065

REACTIONS (7)
  - DEPRESSION [None]
  - DYSPEPSIA [None]
  - FATIGUE [None]
  - HYPERHIDROSIS [None]
  - MEMORY IMPAIRMENT [None]
  - MUSCULOSKELETAL PAIN [None]
  - NAUSEA [None]
